FAERS Safety Report 6998557-X (Version None)
Quarter: 2010Q3

REPORT INFORMATION
  Report Type: 
  Country: None (occurrence: None)
  Receive Date: 20100920
  Receipt Date: 20091105
  Transmission Date: 20110219
  Serious: No
  Sender: FDA-Public Use
  Company Number: US-ASTRAZENECA-2009SE24944

PATIENT
  Age: 55 Year
  Sex: Female
  Weight: 78 kg

DRUGS (11)
  1. SEROQUEL [Suspect]
     Route: 048
     Dates: start: 20040101
  2. POTASSIUM [Concomitant]
  3. LISINOPRIL [Concomitant]
  4. AMLODIPINE [Concomitant]
  5. METOPROLOL [Concomitant]
  6. PLAVIX [Concomitant]
  7. METFORMIN [Concomitant]
  8. NEXIUM [Concomitant]
  9. CLONAZEPAM [Concomitant]
  10. TRAMADOL [Concomitant]
  11. FIBROZOL [Concomitant]

REACTIONS (1)
  - MUSCLE ATROPHY [None]
